FAERS Safety Report 5320114-1 (Version None)
Quarter: 2007Q2

REPORT INFORMATION
  Report Type: 
  Country: None (occurrence: None)
  Receive Date: 20070509
  Receipt Date: 20070427
  Transmission Date: 20071010
  Serious: Yes (Hospitalization)
  Sender: FDA-Public Use
  Company Number: HQWYE892927APR07

PATIENT
  Age: 80 Year
  Sex: Female

DRUGS (6)
  1. CORDARONE [Suspect]
     Dosage: 200 MG 5 TIMES PER WEEK
     Route: 048
  2. PLAVIX [Suspect]
     Route: 048
     Dates: start: 20060415, end: 20070217
  3. TORENTAL [Concomitant]
     Dosage: UNKNOWN
     Route: 065
  4. SPECIAFOLDINE [Concomitant]
     Dosage: UNKNOWN
     Route: 048
  5. NORSET [Suspect]
     Route: 048
  6. LOXEN [Suspect]
     Route: 048

REACTIONS (6)
  - ARRHYTHMIA [None]
  - CEREBRAL HAEMORRHAGE [None]
  - FALL [None]
  - HYPOTENSION [None]
  - LOSS OF CONSCIOUSNESS [None]
  - MALAISE [None]
